FAERS Safety Report 21234983 (Version 1)
Quarter: 2022Q3

REPORT INFORMATION
  Report Type: Spontaneous
  Country: US (occurrence: None)
  Receive Date: 20220819
  Receipt Date: 20220819
  Transmission Date: 20221026
  Serious: No
  Sender: FDA-Public Use
  Company Number: None

PATIENT
  Sex: Female

DRUGS (1)
  1. KESIMPTA [Suspect]
     Active Substance: OFATUMUMAB
     Indication: Multiple sclerosis
     Dosage: OTHER FREQUENCY : WK 0,1,2 THEN MONT;?
     Route: 058
     Dates: start: 202208

REACTIONS (7)
  - Needle issue [None]
  - Headache [None]
  - Pain in extremity [None]
  - Arthralgia [None]
  - Nausea [None]
  - Vomiting [None]
  - Arthralgia [None]
